FAERS Safety Report 14105543 (Version 1)
Quarter: 2017Q4

REPORT INFORMATION
  Report Type: Spontaneous
  Country: US (occurrence: US)
  Receive Date: 20171018
  Receipt Date: 20171018
  Transmission Date: 20180321
  Serious: No
  Sender: FDA-Public Use
  Company Number: US-PRESTIGE BRANDS -2030549

PATIENT
  Age: 73 Year
  Sex: Female

DRUGS (1)
  1. MONISTAT 1 COMBINATION PACK TRIPLE ACTION [Suspect]
     Active Substance: MICONAZOLE NITRATE
     Indication: VULVOVAGINAL MYCOTIC INFECTION
     Route: 067
     Dates: start: 20170722, end: 20170723

REACTIONS (5)
  - Vulvovaginal swelling [Not Recovered/Not Resolved]
  - Vulvovaginal pruritus [None]
  - Vaginal discharge [None]
  - Vulvovaginal burning sensation [None]
  - Condition aggravated [Not Recovered/Not Resolved]

NARRATIVE: CASE EVENT DATE: 20170722
